FAERS Safety Report 15049493 (Version 3)
Quarter: 2018Q2

REPORT INFORMATION
  Report Type: Report from Study
  Country: US (occurrence: US)
  Receive Date: 20180622
  Receipt Date: 20180629
  Transmission Date: 20180711
  Serious: Yes (Other)
  Sender: FDA-Public Use
  Company Number: PHEH2018US024011

PATIENT
  Sex: Male

DRUGS (1)
  1. COSENTYX [Suspect]
     Active Substance: SECUKINUMAB
     Indication: PSORIATIC ARTHROPATHY
     Dosage: 150 MG, QW
     Route: 065

REACTIONS (5)
  - Swelling [Unknown]
  - Enlarged uvula [Unknown]
  - Oral mucosal blistering [Unknown]
  - Swelling face [Unknown]
  - Pharyngeal oedema [Unknown]
